FAERS Safety Report 16969514 (Version 1)
Quarter: 2019Q4

REPORT INFORMATION
  Report Type: Spontaneous
  Country: US (occurrence: US)
  Receive Date: 20190910
  Receipt Date: 20190910
  Transmission Date: 20200122
  Serious: Yes (Hospitalization)
  Sender: FDA-Public Use
  Company Number: None

PATIENT
  Sex: Female
  Weight: 59 kg

DRUGS (1)
  1. FEMARA [Suspect]
     Active Substance: LETROZOLE
     Dates: end: 20190719

REACTIONS (5)
  - Renal failure [None]
  - Hydronephrosis [None]
  - Malignant neoplasm progression [None]
  - Malignant peritoneal neoplasm [None]
  - Urinary tract infection [None]

NARRATIVE: CASE EVENT DATE: 20190719
